FAERS Safety Report 9242696 (Version 1)
Quarter: 2013Q2

REPORT INFORMATION
  Report Type: Spontaneous
  Country: US (occurrence: US)
  Receive Date: 20130419
  Receipt Date: 20130419
  Transmission Date: 20140414
  Serious: Yes (Hospitalization, Other)
  Sender: FDA-Public Use
  Company Number: US-ELI_LILLY_AND_COMPANY-US201304004532

PATIENT
  Age: 78 Year
  Sex: Female
  Weight: 81.63 kg

DRUGS (1)
  1. HUMALOG LISPRO [Suspect]
     Route: 058

REACTIONS (11)
  - Hypoglycaemic unconsciousness [Unknown]
  - Blood glucose increased [Recovered/Resolved]
  - Vomiting [Unknown]
  - Pyrexia [Unknown]
  - Blood glucose increased [Unknown]
  - Blood glucose decreased [Unknown]
  - Pain [Unknown]
  - Nausea [Unknown]
  - Vomiting [Unknown]
  - Fatigue [Unknown]
  - Tremor [Unknown]
